FAERS Safety Report 7459831-6 (Version None)
Quarter: 2011Q2

REPORT INFORMATION
  Report Type: 
  Country: None (occurrence: None)
  Receive Date: 20110504
  Receipt Date: 20110504
  Transmission Date: 20111010
  Serious: Yes (Other)
  Sender: FDA-Public Use
  Company Number: None

PATIENT
  Age: 60 Year
  Sex: Female
  Weight: 108.8633 kg

DRUGS (3)
  1. SIMVASTATIN [Suspect]
     Indication: LOW DENSITY LIPOPROTEIN INCREASED
     Dosage: 80 MG TABLET DAILY PO
     Route: 048
     Dates: start: 20110329, end: 20110419
  2. SIMVASTATIN [Suspect]
     Indication: HIGH DENSITY LIPOPROTEIN DECREASED
     Dosage: 80 MG TABLET DAILY PO
     Route: 048
     Dates: start: 20110329, end: 20110419
  3. SIMVASTATIN [Suspect]
     Indication: MYOCARDIAL INFARCTION
     Dosage: 80 MG TABLET DAILY PO
     Route: 048
     Dates: start: 20110329, end: 20110419

REACTIONS (7)
  - LIP DISORDER [None]
  - STOMATITIS [None]
  - ANORECTAL DISCOMFORT [None]
  - PROCTALGIA [None]
  - MOUTH HAEMORRHAGE [None]
  - HAEMORRHOIDS [None]
  - CHAPPED LIPS [None]
